FAERS Safety Report 17849939 (Version 1)
Quarter: 2020Q2

REPORT INFORMATION
  Report Type: Spontaneous
  Country: CN (occurrence: CN)
  Receive Date: 20200602
  Receipt Date: 20200602
  Transmission Date: 20200714
  Serious: Yes (Hospitalization, Other)
  Sender: FDA-Public Use
  Company Number: CN-ACCORD-183774

PATIENT
  Age: 67 Year
  Sex: Female

DRUGS (1)
  1. FLUOROURACIL. [Suspect]
     Active Substance: FLUOROURACIL
     Indication: NASOPHARYNGEAL CANCER
     Dosage: INITIALLY RECEIVED 0.5 G FU WAS PERFORMED ON 16-AUG-2019,
     Route: 042
     Dates: start: 20190819

REACTIONS (4)
  - Peritonitis [Recovered/Resolved]
  - Infection [Recovered/Resolved]
  - Large intestine perforation [Recovered/Resolved]
  - Colitis [Recovered/Resolved]

NARRATIVE: CASE EVENT DATE: 20190819
